FAERS Safety Report 9619132 (Version 1)
Quarter: 2013Q4

REPORT INFORMATION
  Report Type: Spontaneous
  Country: US (occurrence: US)
  Receive Date: 20131014
  Receipt Date: 20131014
  Transmission Date: 20140711
  Serious: Yes (Hospitalization)
  Sender: FDA-Public Use
  Company Number: US-PFIZER INC-2013292368

PATIENT
  Age: 61 Year
  Sex: Female
  Weight: 74.83 kg

DRUGS (3)
  1. FLECTOR [Suspect]
     Indication: CARPAL TUNNEL SYNDROME
     Dosage: UNK, AS NEEDED
     Route: 062
     Dates: start: 201308
  2. LOPRESSOR [Concomitant]
     Indication: BLOOD PRESSURE ABNORMAL
     Dosage: 50 MG, 2X/DAY
  3. ASPIRIN [Concomitant]
     Indication: CEREBROVASCULAR ACCIDENT
     Dosage: UNK, 1X/DAY

REACTIONS (4)
  - Muscle spasms [Unknown]
  - Fall [Unknown]
  - Blood magnesium decreased [Unknown]
  - Off label use [Unknown]
